FAERS Safety Report 19642787 (Version 1)
Quarter: 2021Q3

REPORT INFORMATION
  Report Type: Spontaneous
  Country: GB (occurrence: GB)
  Receive Date: 20210731
  Receipt Date: 20210731
  Transmission Date: 20211014
  Serious: Yes (Other)
  Sender: FDA-Public Use
  Company Number: GB-DRREDDYS-SPO/UKI/21/0136875

PATIENT
  Age: 74 Year
  Sex: Female

DRUGS (1)
  1. FEXOFENADINE HYDROCHLORIDE 180 [Suspect]
     Active Substance: FEXOFENADINE HYDROCHLORIDE
     Indication: HYPERSENSITIVITY

REACTIONS (4)
  - Dyspnoea [Unknown]
  - Foreign body in throat [Unknown]
  - Product use complaint [Unknown]
  - Wrong technique in product usage process [Unknown]
